FAERS Safety Report 25402536 (Version 1)
Quarter: 2025Q2

REPORT INFORMATION
  Report Type: Spontaneous
  Country: US (occurrence: None)
  Receive Date: 20250605
  Receipt Date: 20250605
  Transmission Date: 20250716
  Serious: No
  Sender: AXSOME THERAPEUTICS, INC.
  Company Number: US-Axsome Therapeutics, Inc.-AXS202505-000862

PATIENT
  Age: 66 Year
  Sex: Male

DRUGS (1)
  1. AUVELITY [Suspect]
     Active Substance: BUPROPION HYDROCHLORIDE\DEXTROMETHORPHAN HYDROBROMIDE
     Indication: Major depression
     Route: 065
     Dates: start: 20250518, end: 202505

REACTIONS (5)
  - Illness [Unknown]
  - Malaise [Unknown]
  - Nausea [Unknown]
  - Dizziness [Unknown]
  - Depression [Unknown]

NARRATIVE: CASE EVENT DATE: 20250518
